FAERS Safety Report 5323546-0 (Version None)
Quarter: 2007Q2

REPORT INFORMATION
  Report Type: 
  Country: None (occurrence: None)
  Receive Date: 20070514
  Receipt Date: 20070504
  Transmission Date: 20071010
  Serious: Yes (Hospitalization)
  Sender: FDA-Public Use
  Company Number: AU-BRISTOL-MYERS SQUIBB COMPANY-13774997

PATIENT
  Age: 46 Year
  Sex: Male

DRUGS (9)
  1. DIABEX [Suspect]
     Indication: METABOLIC DISORDER
     Route: 048
     Dates: start: 20060215, end: 20060323
  2. PROGOUT [Suspect]
     Indication: GOUT
     Route: 048
     Dates: end: 20060323
  3. AMIZIDE [Suspect]
     Indication: OEDEMA
     Route: 048
     Dates: start: 20050715, end: 20060323
  4. ATACAND [Suspect]
     Indication: ESSENTIAL HYPERTENSION
     Route: 048
  5. LASIX [Suspect]
     Indication: OEDEMA
     Route: 048
     Dates: start: 20051111, end: 20060323
  6. CELEBREX [Suspect]
     Indication: OSTEOARTHRITIS
     Route: 048
     Dates: end: 20060323
  7. NEXIUM [Concomitant]
     Indication: OESOPHAGEAL DISORDER
     Route: 048
  8. LIPITOR [Concomitant]
     Indication: METABOLIC DISORDER
     Dates: end: 20060323
  9. CALCIUM CHLORIDE [Concomitant]

REACTIONS (8)
  - COORDINATION ABNORMAL [None]
  - DIARRHOEA [None]
  - HYPOAESTHESIA [None]
  - PARAESTHESIA [None]
  - RENAL IMPAIRMENT [None]
  - SOMNOLENCE [None]
  - TREMOR [None]
  - VOMITING [None]
